FAERS Safety Report 4326431-6 (Version None)
Quarter: 2004Q1

REPORT INFORMATION
  Report Type: 
  Country: None (occurrence: None)
  Receive Date: 20040329
  Receipt Date: 20040329
  Transmission Date: 20041129
  Serious: Yes (Disabling)
  Sender: FDA-Public Use
  Company Number: None

PATIENT
  Age: 54 Year
  Sex: Female
  Weight: 72.5755 kg

DRUGS (1)
  1. PAROXETINE 20 MG TAB APOTEX CORP [Suspect]
     Indication: DEPRESSION
     Dosage: 20 MG PER DAY ORAL
     Route: 048
     Dates: start: 20031218, end: 20040305

REACTIONS (6)
  - DISORIENTATION [None]
  - DRUG WITHDRAWAL SYNDROME [None]
  - HYPOAESTHESIA [None]
  - MALAISE [None]
  - TINNITUS [None]
  - WEIGHT INCREASED [None]
